FAERS Safety Report 15408330 (Version 2)
Quarter: 2018Q3

REPORT INFORMATION
  Report Type: Spontaneous
  Country: BR (occurrence: BR)
  Receive Date: 20180920
  Receipt Date: 20180927
  Transmission Date: 20181010
  Serious: Yes (Other)
  Sender: FDA-Public Use
  Company Number: BR-SA-2018SA255601

PATIENT
  Age: 74 Year
  Sex: Female

DRUGS (5)
  1. PREDNISOLONE. [Suspect]
     Active Substance: PREDNISOLONE
     Indication: PRODUCT USED FOR UNKNOWN INDICATION
     Dosage: 10 MG, QD
  2. METHOTREXATE. [Concomitant]
     Active Substance: METHOTREXATE
     Indication: PRODUCT USED FOR UNKNOWN INDICATION
     Dosage: UNK UNK, UNK
     Route: 065
  3. PREDNISOLONE. [Suspect]
     Active Substance: PREDNISOLONE
     Dosage: 20 MG, UNK
     Route: 065
     Dates: start: 201807
  4. ENBREL [Concomitant]
     Active Substance: ETANERCEPT
     Indication: RHEUMATOID ARTHRITIS
     Dosage: 50 MG, QW
     Route: 065
  5. LEFLUNOMIDE. [Suspect]
     Active Substance: LEFLUNOMIDE
     Indication: PRODUCT USED FOR UNKNOWN INDICATION
     Dosage: UNK UNK, UNK
     Route: 065

REACTIONS (6)
  - Aspartate aminotransferase abnormal [Unknown]
  - Oedema [Unknown]
  - Hepatitis [Unknown]
  - Arthralgia [Unknown]
  - Biopsy liver abnormal [Unknown]
  - Alanine aminotransferase abnormal [Unknown]
